FAERS Safety Report 14204385 (Version 1)
Quarter: 2017Q4

REPORT INFORMATION
  Report Type: Spontaneous
  Country: US (occurrence: US)
  Receive Date: 20171117
  Receipt Date: 20171117
  Transmission Date: 20180321
  Serious: Yes (Congenital Anomaly)
  Sender: FDA-Public Use
  Company Number: None

PATIENT
  Age: 26 Year
  Sex: Female
  Weight: 57 kg

DRUGS (1)
  1. ORKAMBI [Suspect]
     Active Substance: IVACAFTOR\LUMACAFTOR
     Indication: CYSTIC FIBROSIS
     Route: 048
     Dates: start: 20160318

REACTIONS (5)
  - Maternal drugs affecting foetus [None]
  - Ascites [None]
  - Congenital kyphoscoliosis [None]
  - Exomphalos [None]
  - Maternal exposure during pregnancy [None]

NARRATIVE: CASE EVENT DATE: 20171018
